FAERS Safety Report 9287878 (Version 1)
Quarter: 2013Q2

REPORT INFORMATION
  Report Type: Report from Study
  Country: US (occurrence: US)
  Receive Date: 20130514
  Receipt Date: 20130514
  Transmission Date: 20140414
  Serious: Yes (Other)
  Sender: FDA-Public Use
  Company Number: US-ABBOTT-13P-163-1086989-00

PATIENT
  Sex: Female

DRUGS (5)
  1. HUMIRA [Suspect]
     Dates: start: 2011
  2. HUMIRA [Suspect]
  3. HUMIRA [Suspect]
     Dates: start: 2005
  4. PREDNISONE [Concomitant]
     Indication: PRODUCT USED FOR UNKNOWN INDICATION
     Dosage: 5-10MG DAILY (MOST DAYS TAKES 5MG)
  5. METHOTREXATE [Concomitant]

REACTIONS (4)
  - Finger deformity [Not Recovered/Not Resolved]
  - Injection site pain [Unknown]
  - Inflammation [Unknown]
  - Pain [Not Recovered/Not Resolved]
